FAERS Safety Report 7408538-X (Version None)
Quarter: 2011Q2

REPORT INFORMATION
  Report Type: 
  Country: None (occurrence: None)
  Receive Date: 20110412
  Receipt Date: 20110404
  Transmission Date: 20111010
  Serious: Yes (Hospitalization)
  Sender: FDA-Public Use
  Company Number: FR-PFIZER INC-2011079308

PATIENT
  Age: 80 Year
  Sex: Female

DRUGS (8)
  1. PRADAXA [Interacting]
     Indication: THROMBOSIS PROPHYLAXIS
     Dosage: 75 MG, 2X/DAY
     Route: 048
     Dates: start: 20101213, end: 20101229
  2. ACTISKENAN [Concomitant]
     Indication: PAIN
     Dosage: 30 MG, UNK
     Route: 048
     Dates: start: 20101226, end: 20110104
  3. COZAAR [Concomitant]
     Indication: HYPERTENSION
     Dosage: 100 MG, UNK
     Route: 048
  4. DISCOTRINE [Concomitant]
     Dosage: 1 DOSAGE FORMS
     Route: 062
  5. SKENAN [Concomitant]
     Indication: PAIN
     Dosage: 40 MG, UNK
     Route: 048
     Dates: start: 20101226, end: 20110104
  6. ZOLPIDEM [Concomitant]
     Dosage: 1 DOSAGE FORMS
     Route: 048
     Dates: start: 20101225
  7. INIPOMP [Suspect]
     Indication: PROPHYLAXIS AGAINST GASTROINTESTINAL ULCER
     Dosage: 20 MG, 1X/DAY
     Route: 048
     Dates: start: 20101213
  8. CACIT D3 [Concomitant]
     Dosage: 1 DOSAGE FORMS
     Route: 048

REACTIONS (2)
  - VENOUS THROMBOSIS [None]
  - INHIBITORY DRUG INTERACTION [None]
